FAERS Safety Report 10057602 (Version 2)
Quarter: 2015Q4

REPORT INFORMATION
  Report Type: Spontaneous
  Country: JP (occurrence: JP)
  Receive Date: 20140404
  Receipt Date: 20151218
  Transmission Date: 20160304
  Serious: Yes (Hospitalization, Disabling)
  Sender: FDA-Public Use
  Company Number: JP-PFIZER INC-2014092621

PATIENT
  Age: 68 Year
  Sex: Male

DRUGS (5)
  1. 5-FU [Suspect]
     Active Substance: FLUOROURACIL
     Indication: PANCREATIC CARCINOMA
     Dosage: UNK, ONCE A DAY
     Route: 040
     Dates: start: 20140318, end: 20140318
  2. LEVOLEUCOVORIN CALCIUM [Suspect]
     Active Substance: LEVOLEUCOVORIN CALCIUM
     Indication: PANCREATIC CARCINOMA
     Dosage: 300 MG, 1X/DAY
     Route: 041
     Dates: start: 20140318, end: 20140318
  3. 5-FU [Suspect]
     Active Substance: FLUOROURACIL
     Dosage: 3500 MG, ONCE IN 2 DAYS
     Route: 041
     Dates: start: 20140318, end: 20140318
  4. CAMPTO [Suspect]
     Active Substance: IRINOTECAN
     Indication: PANCREATIC CARCINOMA
     Dosage: 260 MG, 1X/DAY
     Route: 041
     Dates: start: 20140318, end: 20140318
  5. ELPLAT [Suspect]
     Active Substance: OXALIPLATIN
     Indication: PANCREATIC CARCINOMA
     Dosage: 125 MG, 1X/DAY
     Route: 041
     Dates: start: 20140318, end: 20140318

REACTIONS (1)
  - Cerebral infarction [Unknown]

NARRATIVE: CASE EVENT DATE: 20140321
